FAERS Safety Report 11591299 (Version 3)
Quarter: 2015Q4

REPORT INFORMATION
  Report Type: Report from Study
  Country: CO (occurrence: CO)
  Receive Date: 20151004
  Receipt Date: 20151009
  Transmission Date: 20160304
  Serious: Yes (Death)
  Sender: FDA-Public Use
  Company Number: PHHY2014CO166184

PATIENT
  Age: 60 Year
  Sex: Female

DRUGS (1)
  1. AFINITOR [Suspect]
     Active Substance: EVEROLIMUS
     Indication: BREAST CANCER
     Dosage: 10 MG, QD
     Route: 048
     Dates: start: 20141217

REACTIONS (18)
  - Metastasis [Fatal]
  - General physical health deterioration [Unknown]
  - Terminal state [Fatal]
  - Eyelid function disorder [Unknown]
  - Aphasia [Unknown]
  - Vomiting [Unknown]
  - Diarrhoea [Unknown]
  - Headache [Unknown]
  - Bone pain [Unknown]
  - Hypophagia [Unknown]
  - Abdominal pain [Unknown]
  - Food intolerance [Unknown]
  - Malignant neoplasm progression [Fatal]
  - Cough [Unknown]
  - Choking [Unknown]
  - Cognitive disorder [Unknown]
  - Weight decreased [Unknown]
  - Asthenia [Unknown]

NARRATIVE: CASE EVENT DATE: 20150105
